FAERS Safety Report 6264065-7 (Version None)
Quarter: 2009Q3

REPORT INFORMATION
  Report Type: 
  Country: None (occurrence: None)
  Receive Date: 20090710
  Receipt Date: 20090626
  Transmission Date: 20100115
  Serious: No
  Sender: FDA-Public Use
  Company Number: US-JNJFOC-20090501315

PATIENT
  Sex: Male
  Weight: 68.04 kg

DRUGS (2)
  1. INVEGA [Suspect]
     Indication: SCHIZOPHRENIA, PARANOID TYPE
     Route: 048
  2. ZYPREXA [Concomitant]
     Indication: SCHIZOPHRENIA
     Route: 048

REACTIONS (6)
  - ANXIETY [None]
  - BRADYCARDIA [None]
  - CHEST DISCOMFORT [None]
  - FEELING ABNORMAL [None]
  - HEART RATE INCREASED [None]
  - TINNITUS [None]
